FAERS Safety Report 4520043-7 (Version None)
Quarter: 2005Q1

REPORT INFORMATION
  Report Type: 
  Country: None (occurrence: None)
  Receive Date: 20041027
  Receipt Date: 20040602
  Transmission Date: 20050727
  Serious: No
  Sender: FDA-Public Use
  Company Number: US078744

PATIENT

DRUGS (1)
  1. SENSIPAR [Suspect]
     Indication: HYPERPARATHYROIDISM SECONDARY
     Dosage: 30, 1 IN 1 DAYS
     Dates: start: 20040526, end: 20040531

REACTIONS (3)
  - ANXIETY [None]
  - DYSPNOEA [None]
  - LETHARGY [None]
